FAERS Safety Report 10053146 (Version 1)
Quarter: 2014Q2

REPORT INFORMATION
  Report Type: Report from Study
  Country: FR (occurrence: FR)
  Receive Date: 20140402
  Receipt Date: 20140402
  Transmission Date: 20141212
  Serious: Yes (Hospitalization)
  Sender: FDA-Public Use
  Company Number: PHHY2014FR037414

PATIENT
  Age: 62 Year
  Sex: Male

DRUGS (5)
  1. MYFORTIC [Suspect]
     Indication: RENAL TRANSPLANT
     Dosage: 720 MG, BID
     Route: 048
     Dates: start: 20130806
  2. MYFORTIC [Suspect]
     Dates: start: 20140108, end: 20140114
  3. MYFORTIC [Suspect]
     Dates: start: 20140204, end: 20140218
  4. ROVALCYTE [Suspect]
     Indication: INFECTION
     Dosage: 450 MG, UNK
     Dates: start: 20130812
  5. ROVALCYTE [Suspect]
     Dates: start: 20140108, end: 20140218

REACTIONS (4)
  - Bone marrow toxicity [Recovered/Resolved]
  - Pancytopenia [Recovered/Resolved]
  - Bone marrow failure [Unknown]
  - Erythropoiesis abnormal [Unknown]
